FAERS Safety Report 20425122 (Version 1)
Quarter: 2022Q1

REPORT INFORMATION
  Report Type: Report from Study
  Country: US (occurrence: US)
  Receive Date: 20220204
  Receipt Date: 20220204
  Transmission Date: 20220424
  Serious: No
  Sender: FDA-Public Use
  Company Number: US-EXELIXIS-CABO-21037122

PATIENT
  Age: 68 Year
  Sex: Male
  Weight: 89.342 kg

DRUGS (10)
  1. CABOMETYX [Suspect]
     Active Substance: CABOZANTINIB S-MALATE
     Indication: Renal cancer
     Dosage: 40 MG, QD
     Route: 048
  2. LENVIMA [Suspect]
     Active Substance: LENVATINIB
     Indication: Renal cancer
     Dosage: UNK
  3. LENVIMA [Suspect]
     Active Substance: LENVATINIB
     Dosage: 10 MG, QD
     Dates: end: 20210218
  4. LENVIMA [Suspect]
     Active Substance: LENVATINIB
     Dosage: 10 MG, QD
     Dates: start: 20210223
  5. VITAMINS [Concomitant]
     Active Substance: VITAMINS
  6. IMODIUM [Concomitant]
     Active Substance: LOPERAMIDE HYDROCHLORIDE
  7. IRON [Concomitant]
     Active Substance: IRON
  8. TYLENOL [Concomitant]
     Active Substance: ACETAMINOPHEN
  9. ZOMETA [Concomitant]
     Active Substance: ZOLEDRONIC ACID
  10. POTASSIUM [Concomitant]
     Active Substance: POTASSIUM

REACTIONS (15)
  - Cystitis [Unknown]
  - Pyrexia [Unknown]
  - Glossodynia [Recovering/Resolving]
  - Pain [Recovering/Resolving]
  - Weight decreased [Recovering/Resolving]
  - Decreased appetite [Recovering/Resolving]
  - Haematocrit decreased [Recovering/Resolving]
  - Dermatitis acneiform [Recovering/Resolving]
  - Dyspnoea [Recovering/Resolving]
  - Fatigue [Recovering/Resolving]
  - Blood potassium decreased [Recovering/Resolving]
  - Blood creatinine increased [Recovering/Resolving]
  - Diarrhoea [Unknown]
  - Vomiting [Unknown]
  - Malignant neoplasm progression [Unknown]

NARRATIVE: CASE EVENT DATE: 20210217
